FAERS Safety Report 4629197-5 (Version None)
Quarter: 2005Q2

REPORT INFORMATION
  Report Type: 
  Country: None (occurrence: None)
  Receive Date: 20050404
  Receipt Date: 20050404
  Transmission Date: 20051028
  Serious: Yes (Other)
  Sender: FDA-Public Use
  Company Number: None

PATIENT
  Age: 63 Year
  Sex: Female

DRUGS (2)
  1. GABAPENTIN [Suspect]
     Indication: BIPOLAR DISORDER
     Dosage: 1 QAM, 1 Q NOON 2 QHS ALL PO
     Route: 048
     Dates: start: 20050120, end: 20050211
  2. WELLBUTRIN SR [Concomitant]

REACTIONS (3)
  - INSOMNIA [None]
  - PHARMACEUTICAL PRODUCT COMPLAINT [None]
  - RESTLESSNESS [None]
